FAERS Safety Report 23111589 (Version 1)
Quarter: 2023Q4

REPORT INFORMATION
  Report Type: Spontaneous
  Country: US (occurrence: None)
  Receive Date: 20231025
  Receipt Date: 20231025
  Transmission Date: 20240110
  Serious: Yes (Other)
  Sender: FDA-Public Use
  Company Number: None

PATIENT
  Sex: Female

DRUGS (13)
  1. STELARA [Suspect]
     Active Substance: USTEKINUMAB
     Indication: Crohn^s disease
     Route: 058
     Dates: start: 20220915
  2. AMLODIPINE TAB 2.5MG [Concomitant]
  3. CYPROHEPTAD TAB 4MG [Concomitant]
  4. FUROSEMIDE TAB 20MG [Concomitant]
  5. FUROSEMIDE TAB 40MG [Concomitant]
  6. HYDROXYZ PAM CAP 25MG [Concomitant]
  7. IRON TAB 45MG [Concomitant]
  8. LOVENOX INJ 60/0.6ML [Concomitant]
  9. MAGNESIUM TAB 250MG [Concomitant]
  10. SPIRONOLACT TAB 100MG [Concomitant]
  11. SPIRONOLACT TAB 50MG [Concomitant]
  12. TACROLIMUS CAP 1MG [Concomitant]
  13. URSODIOL CAP 300MG [Concomitant]

REACTIONS (3)
  - Clostridium difficile infection [None]
  - Liver transplant [None]
  - Drug ineffective [None]
